FAERS Safety Report 22023578 (Version 1)
Quarter: 2023Q1

REPORT INFORMATION
  Report Type: Spontaneous
  Country: FR (occurrence: FR)
  Receive Date: 20230223
  Receipt Date: 20230223
  Transmission Date: 20230417
  Serious: Yes (Other)
  Sender: FDA-Public Use
  Company Number: None

PATIENT
  Age: 67 Year
  Sex: Male

DRUGS (1)
  1. JARDIANCE [Suspect]
     Active Substance: EMPAGLIFLOZIN
     Indication: Type 2 diabetes mellitus
     Route: 048
     Dates: start: 20220929

REACTIONS (4)
  - Pollakiuria [Recovered/Resolved]
  - Dysuria [Recovered/Resolved]
  - Genital tract inflammation [Recovered/Resolved]
  - Penile discharge [Recovered/Resolved]

NARRATIVE: CASE EVENT DATE: 20221226
